FAERS Safety Report 8583615 (Version 3)
Quarter: 2013Q4

REPORT INFORMATION
  Report Type: Report from Study
  Country: MX (occurrence: MX)
  Receive Date: 20120529
  Receipt Date: 20131129
  Transmission Date: 20140711
  Serious: No
  Sender: FDA-Public Use
  Company Number: PHHY2012MX045303

PATIENT
  Age: 74 Year
  Sex: Female

DRUGS (7)
  1. CO-DIOVAN [Suspect]
     Indication: HYPERTENSION
     Dosage: 0.5 DFT (320 VALS/25 HYDR) DAILY
     Route: 048
     Dates: start: 200904
  2. VYTORIN [Concomitant]
     Indication: HYPERTENSION
     Dosage: 1 DF, DAILY
  3. VYTORIN [Concomitant]
     Indication: BLOOD TRIGLYCERIDES ABNORMAL
  4. VYTORIN [Concomitant]
     Indication: BLOOD CHOLESTEROL ABNORMAL
  5. PLENACOR [Concomitant]
     Dosage: 1 DF, DAILY
  6. ASPIRIN PROTECT [Concomitant]
     Indication: COAGULOPATHY
     Dosage: 100 MG, UNK
     Dates: start: 201201
  7. CLEXANE [Concomitant]
     Indication: GENERALISED OEDEMA

REACTIONS (5)
  - Goitre [Not Recovered/Not Resolved]
  - Blood triglycerides decreased [Unknown]
  - Blood cholesterol decreased [Unknown]
  - Fatigue [Not Recovered/Not Resolved]
  - Wrong technique in drug usage process [Not Recovered/Not Resolved]
